FAERS Safety Report 13124186 (Version 3)
Quarter: 2017Q2

REPORT INFORMATION
  Report Type: Spontaneous
  Country: IE (occurrence: IE)
  Receive Date: 20170118
  Receipt Date: 20170620
  Transmission Date: 20170830
  Serious: Yes (Hospitalization, Other)
  Sender: FDA-Public Use
  Company Number: IE-CONCORDIA PHARMACEUTICALS INC.-GSH201701-000411

PATIENT
  Age: 24 Year
  Sex: Female

DRUGS (10)
  1. HYDROXYCHLOROQUINE [Suspect]
     Active Substance: HYDROXYCHLOROQUINE
     Indication: PANNICULITIS
     Route: 065
  2. COLCHICINE. [Suspect]
     Active Substance: COLCHICINE
     Indication: PANNICULITIS
     Route: 065
  3. COLCHICINE. [Suspect]
     Active Substance: COLCHICINE
  4. DOXYCYCLINE. [Suspect]
     Active Substance: DOXYCYCLINE
     Route: 065
  5. HYDROXYCHLOROQUINE [Suspect]
     Active Substance: HYDROXYCHLOROQUINE
  6. PREDNISONE. [Suspect]
     Active Substance: PREDNISONE
     Indication: PANNICULITIS
     Route: 048
  7. PREDNISONE. [Suspect]
     Active Substance: PREDNISONE
     Route: 048
  8. DAPSONE. [Concomitant]
     Active Substance: DAPSONE
     Indication: PANNICULITIS
  9. DOXYCYCLINE. [Suspect]
     Active Substance: DOXYCYCLINE
     Indication: PANNICULITIS
     Route: 065
  10. DOXYCYCLINE. [Suspect]
     Active Substance: DOXYCYCLINE
     Route: 065

REACTIONS (9)
  - Oedema peripheral [Recovered/Resolved]
  - Condition aggravated [Recovered/Resolved]
  - Skin plaque [Recovered/Resolved]
  - Panniculitis [Recovering/Resolving]
  - Skin ulcer [Recovered/Resolved]
  - Drug ineffective [Unknown]
  - Abdominal pain [Unknown]
  - Methaemoglobinaemia [Unknown]
  - Off label use [Unknown]
